FAERS Safety Report 10039105 (Version 2)
Quarter: 2014Q2

REPORT INFORMATION
  Report Type: Spontaneous
  Country: BR (occurrence: BR)
  Receive Date: 20140326
  Receipt Date: 20140530
  Transmission Date: 20141212
  Serious: Yes (Other)
  Sender: FDA-Public Use
  Company Number: BR-ASTRAZENECA-2014SE19249

PATIENT
  Age: 66 Year
  Sex: Female
  Weight: 58 kg

DRUGS (8)
  1. CRESTOR [Suspect]
     Indication: BLOOD CHOLESTEROL INCREASED
     Route: 048
     Dates: start: 2011
  2. VIMOVO [Suspect]
     Indication: OSTEOARTHRITIS
     Dosage: 500 MG+20 MG, TWO TIMES A DAY
     Route: 048
     Dates: start: 2014, end: 2014
  3. TIBOLONE [Concomitant]
     Indication: THYROIDECTOMY
     Dosage: DAILY
     Route: 048
  4. UNKNOWN [Concomitant]
     Indication: THYROIDECTOMY
     Dosage: DAILY
     Route: 048
  5. DULOXETINE [Concomitant]
     Indication: ANTIDEPRESSANT THERAPY
     Dosage: AT NIGHT
     Route: 048
  6. ALPRAZOLAM [Concomitant]
     Indication: ANXIOLYTIC THERAPY
     Dosage: AT NIGHT
     Route: 048
  7. BETATRINTA [Concomitant]
     Dosage: MONTH
     Route: 030
  8. VENLAFAXINE HYDROCHLORIDE [Concomitant]
     Indication: DEPRESSION
     Route: 048

REACTIONS (3)
  - Osteoarthritis [Recovering/Resolving]
  - Hypersensitivity [Unknown]
  - Pruritus [Unknown]
